FAERS Safety Report 18169510 (Version 1)
Quarter: 2020Q3

REPORT INFORMATION
  Report Type: Spontaneous
  Country: US (occurrence: US)
  Receive Date: 20200819
  Receipt Date: 20200819
  Transmission Date: 20201103
  Serious: Yes (Hospitalization)
  Sender: FDA-Public Use
  Company Number: None

PATIENT
  Age: 61 Year
  Sex: Female

DRUGS (5)
  1. FOLIC ACID 1MG [Concomitant]
     Active Substance: FOLIC ACID
  2. GABAPENTIN 100 MG [Concomitant]
     Active Substance: GABAPENTIN
  3. METHOTREXATE 2.5 MG [Concomitant]
     Active Substance: METHOTREXATE
  4. LEVOTHYROXINE 100 MCG [Concomitant]
     Active Substance: LEVOTHYROXINE
  5. ENBREL [Suspect]
     Active Substance: ETANERCEPT
     Indication: RHEUMATOID ARTHRITIS
     Dosage: ?          OTHER FREQUENCY:EVERY 7 DAYS;?
     Route: 058

REACTIONS (2)
  - Therapy interrupted [None]
  - Colitis ischaemic [None]
